FAERS Safety Report 7036078-9 (Version None)
Quarter: 2010Q4

REPORT INFORMATION
  Report Type: 
  Country: None (occurrence: None)
  Receive Date: 20101007
  Receipt Date: 20101007
  Transmission Date: 20110411
  Serious: Yes (Life-Threatening, Hospitalization)
  Sender: FDA-Public Use
  Company Number: None

PATIENT
  Sex: Male
  Weight: 111.1313 kg

DRUGS (3)
  1. ACTOS [Suspect]
     Indication: TYPE 2 DIABETES MELLITUS
     Dosage: 1 TABLET DAILY PO
     Route: 048
     Dates: start: 20090317, end: 20100925
  2. AVANDIA [Concomitant]
  3. GLIPIZIDE [Concomitant]

REACTIONS (2)
  - BLADDER CANCER [None]
  - URINARY BLADDER HAEMORRHAGE [None]
